FAERS Safety Report 20773471 (Version 2)
Quarter: 2022Q4

REPORT INFORMATION
  Report Type: Report from Study
  Country: US (occurrence: US)
  Receive Date: 20220502
  Receipt Date: 20221121
  Transmission Date: 20230112
  Serious: Yes (Hospitalization)
  Sender: FDA-Public Use
  Company Number: US-Accord-262429

PATIENT
  Sex: Male

DRUGS (7)
  1. CLOZAPINE [Suspect]
     Active Substance: CLOZAPINE
     Indication: Schizoaffective disorder bipolar type
     Dosage: 200 MG AT BEDTIME/50 MG IN THE MORNING BY MOUTH
     Route: 048
     Dates: start: 20211012
  2. OLANZAPINE [Concomitant]
     Active Substance: OLANZAPINE
     Dosage: TWICE DAILY
  3. VENLAFAXINE [Concomitant]
     Active Substance: VENLAFAXINE HYDROCHLORIDE
     Dosage: DAILY; TABLET (EXTENDED RELEASE)
  4. CLONAZEPAM [Concomitant]
     Active Substance: CLONAZEPAM
     Dosage: BID AND AT BEDTIME
  5. PALIPERIDONE PALMITATE [Concomitant]
     Active Substance: PALIPERIDONE PALMITATE
     Dosage: EVERY 4 WEEKS
  6. ISOPTO ATROPINE [Concomitant]
     Active Substance: ATROPINE SULFATE
     Dosage: STRENGTH:1%, SOLUTION SWISH AND SPIT
  7. LACTULOSE [Concomitant]
     Active Substance: LACTULOSE
     Dosage: BID

REACTIONS (2)
  - Psychiatric decompensation [Unknown]
  - Suicidal ideation [Unknown]
